FAERS Safety Report 20893647 (Version 1)
Quarter: 2022Q2

REPORT INFORMATION
  Report Type: Spontaneous
  Country: US (occurrence: None)
  Receive Date: 20220527
  Receipt Date: 20220527
  Transmission Date: 20220721
  Serious: Yes (Hospitalization)
  Sender: FDA-Public Use
  Company Number: None

PATIENT
  Age: 18 Year
  Sex: Female

DRUGS (1)
  1. DEFERASIROX [Suspect]
     Active Substance: DEFERASIROX
     Indication: Iron overload
     Dosage: 720 MG DAILY ORAL?
     Route: 048
     Dates: start: 201907

REACTIONS (7)
  - Liver disorder [None]
  - Pyrexia [None]
  - Ophthalmoplegia [None]
  - Hemiparesis [None]
  - Chest pain [None]
  - Cerebrovascular accident [None]
  - Hemiparesis [None]

NARRATIVE: CASE EVENT DATE: 20220509
